FAERS Safety Report 4745219-5 (Version None)
Quarter: 2005Q3

REPORT INFORMATION
  Report Type: 
  Country: None (occurrence: None)
  Receive Date: 20050812
  Receipt Date: 20050801
  Transmission Date: 20060218
  Serious: Yes (Other)
  Sender: FDA-Public Use
  Company Number: FR-2005-010092

PATIENT
  Age: 31 Year
  Sex: Female

DRUGS (1)
  1. MIRENA [Suspect]
     Indication: CONTRACEPTION
     Dosage: 20 UG/DAY, CONT, INTRA-UTERINE
     Route: 015
     Dates: start: 20031201, end: 20041001

REACTIONS (4)
  - ALOPECIA [None]
  - CUTANEOUS LUPUS ERYTHEMATOSUS [None]
  - PSORIASIS [None]
  - RASH [None]
